FAERS Safety Report 19101220 (Version 1)
Quarter: 2021Q2

REPORT INFORMATION
  Report Type: Report from Study
  Country: PK (occurrence: PK)
  Receive Date: 20210407
  Receipt Date: 20210407
  Transmission Date: 20210717
  Serious: Yes (Death, Hospitalization)
  Sender: FDA-Public Use
  Company Number: NVSC2021PK076628

PATIENT
  Age: 51 Year
  Sex: Male
  Weight: 63 kg

DRUGS (1)
  1. TASIGNA [Suspect]
     Active Substance: NILOTINIB
     Indication: CHRONIC MYELOID LEUKAEMIA
     Dosage: 600 MG, BID (EXPIRAY DATE:01?01?0001)
     Route: 048
     Dates: start: 20150703

REACTIONS (5)
  - Malignant neoplasm progression [Fatal]
  - Lung disorder [Unknown]
  - Hepatic cirrhosis [Fatal]
  - Dyspnoea [Unknown]
  - Philadelphia positive chronic myeloid leukaemia [Fatal]

NARRATIVE: CASE EVENT DATE: 20210212
